FAERS Safety Report 7350849-0 (Version None)
Quarter: 2011Q1

REPORT INFORMATION
  Report Type: 
  Country: None (occurrence: None)
  Receive Date: 20110314
  Receipt Date: 20110310
  Transmission Date: 20110831
  Serious: No
  Sender: FDA-Public Use
  Company Number: US-PFIZER INC-2011054652

PATIENT
  Sex: Female

DRUGS (3)
  1. PLAVIX [Concomitant]
     Dosage: 75 MG, DAILY
  2. COREG [Concomitant]
     Dosage: 40 MG, DAILY
  3. LIPITOR [Suspect]
     Indication: BLOOD CHOLESTEROL INCREASED
     Dosage: 40 MG, DAILY
     Route: 048
     Dates: start: 20071101

REACTIONS (1)
  - MUSCLE TIGHTNESS [None]
